FAERS Safety Report 5182876-6 (Version None)
Quarter: 2006Q4

REPORT INFORMATION
  Report Type: 
  Country: None (occurrence: None)
  Receive Date: 20061220
  Receipt Date: 20051128
  Transmission Date: 20070319
  Serious: No
  Sender: FDA-Public Use
  Company Number: US-GLAXOSMITHKLINE-A0583642A

PATIENT
  Age: 44 Year
  Sex: Male

DRUGS (2)
  1. EQUATE NTS 21MG [Suspect]
     Indication: SMOKING CESSATION THERAPY
  2. NICODERM CQ [Suspect]
     Indication: SMOKING CESSATION THERAPY
     Dates: start: 20051115

REACTIONS (1)
  - APPLICATION SITE ERYTHEMA [None]
